FAERS Safety Report 7484251-8 (Version None)
Quarter: 2011Q2

REPORT INFORMATION
  Report Type: 
  Country: None (occurrence: None)
  Receive Date: 20110517
  Receipt Date: 20110505
  Transmission Date: 20111010
  Serious: Yes (Other)
  Sender: FDA-Public Use
  Company Number: PHHY2010MT77846

PATIENT
  Age: 37 Year
  Sex: Male

DRUGS (1)
  1. AFINITOR [Suspect]
     Indication: METASTATIC RENAL CELL CARCINOMA
     Dosage: 10 MG, DAILY
     Route: 048
     Dates: start: 20100601, end: 20110502

REACTIONS (11)
  - NEOPLASM MALIGNANT [None]
  - INFLUENZA [None]
  - COUGH [None]
  - STOMATITIS [None]
  - HYPERGLYCAEMIA [None]
  - HYPERCHOLESTEROLAEMIA [None]
  - DIZZINESS [None]
  - PERICARDIAL EFFUSION [None]
  - ANAEMIA [None]
  - NAIL DISORDER [None]
  - MALAISE [None]
